FAERS Safety Report 8000616 (Version 2)
Quarter: 2012Q4

REPORT INFORMATION
  Report Type: 
  Country: US (occurrence: US)
  Receive Date: 20110621
  Receipt Date: 20121010
  Transmission Date: 20130627
  Serious: No
  Sender: FDA-Public Use
  Company Number: US-ASTRAZENECA-2009SE30267

PATIENT
  Age: 69 Year
  Sex: Male
  Weight: 86.2 kg

DRUGS (37)
  1. PULMICORT FLEXHALER [Suspect]
     Indication: CHRONIC OBSTRUCTIVE PULMONARY DISEASE
     Dosage: 180 MCG  TWO PUFFS TWICE A DAY
     Route: 055
     Dates: start: 2010
  2. NEXIUM [Suspect]
     Indication: GASTROOESOPHAGEAL REFLUX DISEASE
     Route: 048
  3. CLINORIL [Concomitant]
  4. SPIRONOLACTONE [Concomitant]
     Indication: ILL-DEFINED DISORDER
  5. GLYBURIDE [Concomitant]
     Indication: DIABETES MELLITUS
  6. COREG [Concomitant]
     Indication: CARDIAC DISORDER
  7. FUROSEMIDE [Concomitant]
  8. FERREX [Concomitant]
  9. FLUTICASONE [Concomitant]
  10. PEROGESIC [Concomitant]
  11. ASACOL [Concomitant]
  12. LORATADINE [Concomitant]
  13. FOLIC ACID [Concomitant]
  14. ISOSORBIDE [Concomitant]
  15. SIMVASTATIN [Concomitant]
  16. SPIRIVA [Concomitant]
  17. DIGOXIN [Concomitant]
  18. BUMEX [Concomitant]
  19. PREDNISOLONE [Concomitant]
  20. VITAMIN B COMPLEX [Concomitant]
  21. MULTIVITAMIN [Concomitant]
  22. LANTUS INSULIN [Concomitant]
     Indication: DIABETES MELLITUS
  23. PRAVASTATIN [Concomitant]
     Indication: BLOOD CHOLESTEROL ABNORMAL
  24. LIALDA [Concomitant]
     Indication: COLITIS
  25. LOVAZA [Concomitant]
     Indication: BLOOD CHOLESTEROL ABNORMAL
  26. LORATIDINE [Concomitant]
     Indication: HYPERSENSITIVITY
  27. LORATIDINE [Concomitant]
     Indication: EYE PRURITUS
  28. LORATIDINE [Concomitant]
     Indication: RHINORRHOEA
  29. ISOSORBIDE ER [Concomitant]
     Indication: CARDIAC DISORDER
  30. GABAPENTIN [Concomitant]
     Indication: NEUROPATHY PERIPHERAL
  31. CLINDAMYCIN [Concomitant]
     Indication: ORAL INFECTION
  32. IMODIUM [Concomitant]
     Indication: COLITIS
  33. IMODIUM [Concomitant]
     Indication: DIARRHOEA
  34. ASPIRIN [Concomitant]
     Indication: PAIN
  35. BUMETADINE [Concomitant]
  36. AZELASTINE [Concomitant]
     Indication: HYPERSENSITIVITY
  37. AZELASTINE [Concomitant]
     Indication: EYE PRURITUS

REACTIONS (12)
  - Gastrooesophageal reflux disease [Unknown]
  - Hepatic cirrhosis [Unknown]
  - Chronic obstructive pulmonary disease [Unknown]
  - Tremor [Unknown]
  - Oral infection [Unknown]
  - Toothache [Unknown]
  - Dyspnoea [Unknown]
  - Pericardial effusion [Unknown]
  - Pleural effusion [Unknown]
  - Burning sensation [Unknown]
  - Diarrhoea [Unknown]
  - Abdominal pain upper [Unknown]
